FAERS Safety Report 6146453-2 (Version None)
Quarter: 2009Q2

REPORT INFORMATION
  Report Type: 
  Country: None (occurrence: None)
  Receive Date: 20090407
  Receipt Date: 20090330
  Transmission Date: 20091009
  Serious: Yes (Other)
  Sender: FDA-Public Use
  Company Number: A0775903A

PATIENT
  Age: 37 Year
  Sex: Female

DRUGS (4)
  1. WELLBUTRIN XL [Suspect]
     Indication: DEPRESSION
     Dosage: 300MG PER DAY
     Route: 048
     Dates: start: 20090314, end: 20090320
  2. WELLBUTRIN [Suspect]
     Indication: DEPRESSION
     Dosage: 150MG THREE TIMES PER DAY
     Route: 048
     Dates: start: 20030101, end: 20070101
  3. CELEXA [Suspect]
     Dosage: 10MG PER DAY
     Dates: start: 20090305, end: 20090320
  4. CLONAZEPAM [Concomitant]
     Dates: start: 20090305

REACTIONS (4)
  - DRUG EXPOSURE DURING PREGNANCY [None]
  - FEELING DRUNK [None]
  - HALLUCINATION [None]
  - LIVE BIRTH [None]
